FAERS Safety Report 24183872 (Version 2)
Quarter: 2024Q3

REPORT INFORMATION
  Report Type: Spontaneous
  Country: US (occurrence: US)
  Receive Date: 20240807
  Receipt Date: 20240808
  Transmission Date: 20241017
  Serious: No
  Sender: OTSUKA
  Company Number: US-OTSUKA-2024_016113

PATIENT
  Sex: Female

DRUGS (3)
  1. ABILIFY ASIMTUFII [Suspect]
     Active Substance: ARIPIPRAZOLE
     Indication: Product used for unknown indication
     Dosage: 960 MG
     Route: 065
  2. ABILIFY [Suspect]
     Active Substance: ARIPIPRAZOLE
     Indication: Product used for unknown indication
     Dosage: UNK
     Route: 048
  3. COGENTIN [Suspect]
     Active Substance: BENZTROPINE MESYLATE
     Indication: Product used for unknown indication
     Dosage: UNK
     Route: 065

REACTIONS (2)
  - Eye movement disorder [Unknown]
  - Treatment noncompliance [Unknown]
